FAERS Safety Report 5081322-0 (Version None)
Quarter: 2006Q3

REPORT INFORMATION
  Report Type: 
  Country: None (occurrence: None)
  Receive Date: 20060814
  Receipt Date: 20060814
  Transmission Date: 20061208
  Serious: Yes (Hospitalization)
  Sender: FDA-Public Use
  Company Number: None

PATIENT
  Age: 52 Year
  Sex: Female

DRUGS (1)
  1. CITRATE WENT THOUGH SUBCLAVIAN CENTRALLY [Suspect]
     Dosage: SUBCLAVIAN CENTRALLY

REACTIONS (2)
  - ACIDOSIS [None]
  - INCORRECT ROUTE OF DRUG ADMINISTRATION [None]
